FAERS Safety Report 24238149 (Version 1)
Quarter: 2024Q3

REPORT INFORMATION
  Report Type: Spontaneous
  Country: CA (occurrence: CA)
  Receive Date: 20240822
  Receipt Date: 20240822
  Transmission Date: 20241017
  Serious: Yes (Other)
  Sender: LEO PHARM
  Company Number: None

PATIENT
  Sex: Female

DRUGS (24)
  1. PROTOPIC [Suspect]
     Active Substance: TACROLIMUS
     Indication: Product used for unknown indication
     Dosage: DOSE, FREQUENCY, THERAPY DURATION: ASKED BUT UNKNOWN
     Route: 003
  2. CEPHALEXIN [Suspect]
     Active Substance: CEPHALEXIN
     Indication: Product used for unknown indication
     Dosage: DOSE FREQUENCY THERAPY DURATION: ASKED BUT UNKNOWN
  3. HYDROCORTISONE VALERATE [Suspect]
     Active Substance: HYDROCORTISONE VALERATE
     Indication: Product used for unknown indication
     Dosage: DOSE FREQUENCY THERAPY DURATION: ASKED BUT UNKNOWN
  4. SULFATRIM [Suspect]
     Active Substance: SULFAMETHOXAZOLE\TRIMETHOPRIM
     Indication: Product used for unknown indication
     Dosage: DOSE FREQUENCY THERAPY DURATION: ASKED BUT UNKNOWN
  5. METHOTREXATE [Suspect]
     Active Substance: METHOTREXATE
     Indication: Product used for unknown indication
     Dosage: DOSE FREQUENCY THERAPY DURATION: ASKED BUT UNKNOWN
     Route: 048
  6. PREDNISONE [Suspect]
     Active Substance: PREDNISONE
     Indication: Product used for unknown indication
     Dosage: DOSE FREQUENCY THERAPY DURATION: ASKED BUT UNKNOWN
     Route: 048
  7. ELIDEL [Concomitant]
     Active Substance: PIMECROLIMUS
     Indication: Product used for unknown indication
     Dosage: DOSE FREQUENCY THERAPY DURATION: ASKED BUT UNKNOWN
  8. CIPROFLOXACIN [Suspect]
     Active Substance: CIPROFLOXACIN
     Indication: Product used for unknown indication
     Dosage: DOSE FREQUENCY THERAPY DURATION: ASKED BUT UNKNOWN
  9. AZATHIOPRINE [Suspect]
     Active Substance: AZATHIOPRINE
     Indication: Product used for unknown indication
     Dosage: DOSE FREQUENCY THERAPY DURATION: ASKED BUT UNKNOWN
  10. CLOBETASOL [Suspect]
     Active Substance: CLOBETASOL
     Indication: Product used for unknown indication
     Dosage: DOSE FREQUENCY THERAPY DURATION: ASKED BUT UNKNOWN
  11. ADALIMUMAB [Suspect]
     Active Substance: ADALIMUMAB
     Indication: Product used for unknown indication
     Dosage: DOSE FREQUENCY THERAPY DURATION: ASKED BUT UNKNOWN
  12. AMOXICILLIN\CLAVULANATE POTASSIUM [Suspect]
     Active Substance: AMOXICILLIN\CLAVULANATE POTASSIUM
     Indication: Product used for unknown indication
     Dosage: DOSE FREQUENCY THERAPY DURATION: ASKED BUT UNKNOWN
  13. GABAPENTIN [Suspect]
     Active Substance: GABAPENTIN
     Indication: Product used for unknown indication
     Dosage: DOSE FREQUENCY THERAPY DURATION: ASKED BUT UNKNOWN
  14. CLINDAMYCIN [Suspect]
     Active Substance: CLINDAMYCIN
     Indication: Product used for unknown indication
     Dosage: DOSE FREQUENCY THERAPY DURATION: ASKED BUT UNKNOWN
  15. CLOTRIMAZOLE [Suspect]
     Active Substance: CLOTRIMAZOLE
     Indication: Product used for unknown indication
     Dosage: DOSE FREQUENCY THERAPY DURATION: ASKED BUT UNKNOWN
  16. REMICADE [Suspect]
     Active Substance: INFLIXIMAB
     Indication: Product used for unknown indication
     Dosage: DOSE, FREQUENCY, THERAPY DURATION: ASKED BUT UNKNOWN
  17. KETOTIFEN [Suspect]
     Active Substance: KETOTIFEN
     Indication: Product used for unknown indication
     Dosage: DOSE FREQUENCY THERAPY DURATION: ASKED BUT UNKNOWN
  18. MINOCYCLINE [Suspect]
     Active Substance: MINOCYCLINE HYDROCHLORIDE
     Indication: Product used for unknown indication
     Dosage: DOSE FREQUENCY THERAPY DURATION: ASKED BUT UNKNOWN
  19. STELARA [Suspect]
     Active Substance: USTEKINUMAB
     Indication: Product used for unknown indication
     Dosage: DOSE, FREQUENCY, THERAPY DURATION: ASKED BUT UNKNOWN
     Route: 058
  20. METRONIDAZOLE [Suspect]
     Active Substance: METRONIDAZOLE
     Indication: Product used for unknown indication
     Dosage: DOSE FREQUENCY THERAPY DURATION: ASKED BUT UNKNOWN
  21. DAPSONE [Suspect]
     Active Substance: DAPSONE
     Indication: Product used for unknown indication
     Dosage: DOSE FREQUENCY THERAPY DURATION: ASKED BUT UNKNOWN
  22. DOXYCYCLINE [Suspect]
     Active Substance: DOXYCYCLINE\DOXYCYCLINE HYCLATE
     Indication: Product used for unknown indication
     Dosage: DOSE FREQUENCY THERAPY DURATION: ASKED BUT UNKNOWN
  23. HYDROXYCHLOROQUINE [Suspect]
     Active Substance: HYDROXYCHLOROQUINE
     Indication: Product used for unknown indication
     Dosage: DOSE FREQUENCY THERAPY DURATION: ASKED BUT UNKNOWN
  24. TETRACYCLINE [Suspect]
     Active Substance: TETRACYCLINE
     Indication: Product used for unknown indication
     Dosage: DOSE FREQUENCY THERAPY DURATION: ASKED BUT UNKNOWN

REACTIONS (4)
  - Wound complication [Unknown]
  - Carpal tunnel syndrome [Unknown]
  - Lymphadenitis [Unknown]
  - Subcutaneous abscess [Unknown]
